FAERS Safety Report 9731167 (Version 1)
Quarter: 2013Q4

REPORT INFORMATION
  Report Type: Spontaneous
  Country: US (occurrence: US)
  Receive Date: 20131203
  Receipt Date: 20131203
  Transmission Date: 20140711
  Serious: No
  Sender: FDA-Public Use
  Company Number: US-BAYER-2013-147078

PATIENT
  Age: 84 Year
  Sex: Male
  Weight: 73 kg

DRUGS (4)
  1. ALEVE CAPLET [Suspect]
     Indication: INFLAMMATION
     Dosage: 4 DF, UNK
     Route: 048
     Dates: start: 20131126, end: 20131126
  2. AVODART [Concomitant]
  3. BAYER ASPIRIN REGIMEN ADULT LOW STRENGTH [Concomitant]
     Indication: ISCHAEMIC HEART DISEASE PROPHYLAXIS
  4. SYNTHROID [Concomitant]

REACTIONS (3)
  - Extra dose administered [None]
  - Off label use [None]
  - Hypoaesthesia [Recovered/Resolved]
